FAERS Safety Report 15819069 (Version 1)
Quarter: 2019Q1

REPORT INFORMATION
  Report Type: Spontaneous
  Country: US (occurrence: US)
  Receive Date: 20190114
  Receipt Date: 20190114
  Transmission Date: 20190417
  Serious: No
  Sender: FDA-Public Use
  Company Number: US-ROCHE-2111360

PATIENT
  Sex: Male

DRUGS (1)
  1. NUTROPIN [Suspect]
     Active Substance: SOMATROPIN
     Indication: HYPOPITUITARISM
     Dosage: ONGOING, STRENGTH: 10 MG PEN
     Route: 058
     Dates: start: 20180111

REACTIONS (3)
  - Anger [Unknown]
  - Mood altered [Unknown]
  - Depression [Unknown]
